FAERS Safety Report 8950851 (Version 1)
Quarter: 2012Q4

REPORT INFORMATION
  Report Type: Spontaneous
  Country: US (occurrence: None)
  Receive Date: 20121130
  Receipt Date: 20121130
  Transmission Date: 20130627
  Serious: Yes (Other)
  Sender: FDA-Public Use
  Company Number: None

PATIENT
  Age: 49 Year
  Sex: Female
  Weight: 71.67 kg

DRUGS (1)
  1. CYMBALTA 60MG ELI LILLY [Suspect]

REACTIONS (25)
  - Drug effect decreased [None]
  - Neck pain [None]
  - Musculoskeletal pain [None]
  - Feeling abnormal [None]
  - Paraesthesia [None]
  - Fatigue [None]
  - Anxiety [None]
  - Panic attack [None]
  - Vertigo [None]
  - Decreased interest [None]
  - Drug withdrawal syndrome [None]
  - Headache [None]
  - Asthenia [None]
  - Tremor [None]
  - Pain [None]
  - Confusional state [None]
  - Photophobia [None]
  - Night sweats [None]
  - Chills [None]
  - Pyrexia [None]
  - Weight increased [None]
  - Toothache [None]
  - Epistaxis [None]
  - Reading disorder [None]
  - Dysgraphia [None]
